FAERS Safety Report 13736995 (Version 2)
Quarter: 2017Q3

REPORT INFORMATION
  Report Type: Spontaneous
  Country: DE (occurrence: DE)
  Receive Date: 20170710
  Receipt Date: 20170802
  Transmission Date: 20171127
  Serious: Yes (Other)
  Sender: FDA-Public Use
  Company Number: PHHY2017DE100469

PATIENT
  Age: 47 Year
  Sex: Female

DRUGS (3)
  1. GILENYA [Suspect]
     Active Substance: FINGOLIMOD HYDROCHLORIDE
     Indication: RELAPSING-REMITTING MULTIPLE SCLEROSIS
     Dosage: 0.5 MG, QD
     Route: 048
     Dates: start: 201111
  2. CYMBALTA [Concomitant]
     Active Substance: DULOXETINE HYDROCHLORIDE
     Indication: PRODUCT USED FOR UNKNOWN INDICATION
     Dosage: 60 NG, QD
     Route: 048
  3. SPASMEX [Concomitant]
     Active Substance: TROSPIUM CHLORIDE
     Indication: PRODUCT USED FOR UNKNOWN INDICATION
     Dosage: 45 MG, QD
     Route: 048

REACTIONS (2)
  - Loss of consciousness [Unknown]
  - Hyperhidrosis [Unknown]

NARRATIVE: CASE EVENT DATE: 20170616
